FAERS Safety Report 18907243 (Version 1)
Quarter: 2021Q1

REPORT INFORMATION
  Report Type: Spontaneous
  Country: ES (occurrence: ES)
  Receive Date: 20210217
  Receipt Date: 20210217
  Transmission Date: 20210420
  Serious: Yes (Other)
  Sender: FDA-Public Use
  Company Number: ES-AMGEN-ESPSP2021024001

PATIENT
  Age: 87 Year
  Sex: Female
  Weight: 53 kg

DRUGS (1)
  1. PROLIA [Suspect]
     Active Substance: DENOSUMAB
     Indication: PRODUCT USED FOR UNKNOWN INDICATION
     Dosage: 60 MILLIGRAM, Q6MO (1 ADMINISTRATION EACH 6 MONTHS)
     Route: 030
     Dates: start: 2017, end: 20210101

REACTIONS (2)
  - Intestinal obstruction [Recovered/Resolved]
  - Asymptomatic COVID-19 [Recovered/Resolved]

NARRATIVE: CASE EVENT DATE: 20210107
